FAERS Safety Report 10341150 (Version 1)
Quarter: 2014Q3

REPORT INFORMATION
  Report Type: Report from Study
  Country: BR (occurrence: BR)
  Receive Date: 20140724
  Receipt Date: 20140724
  Transmission Date: 20150326
  Serious: Yes (Death, Other)
  Sender: FDA-Public Use
  Company Number: PHHY2014BR089915

PATIENT
  Sex: Male
  Weight: 28 kg

DRUGS (3)
  1. CREON 10000 [Concomitant]
     Indication: CYSTIC FIBROSIS
     Dosage: 2 DF, DAILY (MORNING AND NIGHT)
  2. ZOTEON PODHALER [Suspect]
     Active Substance: TOBRAMYCIN
     Indication: CYSTIC FIBROSIS
     Dosage: 4 DF, DAILY (MORNING AND AT NIGHT) CAPSULE
     Dates: end: 20140708
  3. CREON [Concomitant]
     Active Substance: PANCRELIPASE AMYLASE\PANCRELIPASE LIPASE\PANCRELIPASE PROTEASE
     Indication: CYSTIC FIBROSIS
     Dosage: 5 DF, DAILY
     Dates: end: 20140707

REACTIONS (3)
  - Pneumonia [Fatal]
  - Aphagia [Unknown]
  - Infective pulmonary exacerbation of cystic fibrosis [Fatal]
